FAERS Safety Report 8457112-5 (Version None)
Quarter: 2012Q2

REPORT INFORMATION
  Report Type: 
  Country: None (occurrence: None)
  Receive Date: 20120621
  Receipt Date: 20120615
  Transmission Date: 20120825
  Serious: No
  Sender: FDA-Public Use
  Company Number: US-B.I. PHARMACEUTICALS,INC./RIDGEFIELD-2012-BP-13874BP

PATIENT
  Sex: Female

DRUGS (14)
  1. VAVA MYST [Concomitant]
     Indication: HYPERSENSITIVITY
     Route: 045
     Dates: start: 20120501
  2. NEPHROTATS [Concomitant]
     Indication: RENAL DISORDER
     Route: 048
     Dates: start: 20100101
  3. TRADJENTA [Suspect]
     Indication: TYPE 2 DIABETES MELLITUS
     Dosage: 5 MG
     Route: 048
     Dates: start: 20120609, end: 20120615
  4. DIAZEPAM [Concomitant]
     Indication: HYPERTENSION
     Route: 048
     Dates: start: 20000101
  5. PROCRIT [Concomitant]
     Indication: RENAL DISORDER
     Dates: start: 20100101
  6. IRON SUPPLEMENT [Concomitant]
     Indication: ANAEMIA
     Route: 048
     Dates: start: 20100101
  7. GABAPENTIN [Concomitant]
     Indication: PAIN
     Route: 048
     Dates: start: 20100101
  8. PATANASE NASAL [Concomitant]
     Indication: HYPERSENSITIVITY
     Route: 045
     Dates: start: 20110301
  9. PRAVASTATIN [Concomitant]
     Indication: BLOOD CHOLESTEROL
     Dosage: 40 MG
     Route: 048
     Dates: start: 20070101
  10. CALCITRIOL [Concomitant]
     Indication: MINERAL SUPPLEMENTATION
     Dosage: 0.25 MG
     Route: 048
     Dates: start: 20110101
  11. GABAPENTIN [Concomitant]
     Indication: NEUROPATHY PERIPHERAL
  12. RANITIDINE [Concomitant]
     Indication: GASTROOESOPHAGEAL REFLUX PROPHYLAXIS
     Dosage: 150 MG
     Route: 048
     Dates: start: 20050101
  13. ASPIRIN [Concomitant]
     Indication: ISCHAEMIC HEART DISEASE PROPHYLAXIS
     Dosage: 81 MG
     Route: 048
     Dates: start: 20100101
  14. HYDROCHLOROTHIAZIDE [Concomitant]
     Indication: HYPERTENSION
     Dosage: 12.5 MG
     Route: 048
     Dates: start: 20120501

REACTIONS (7)
  - MYALGIA [None]
  - ARTHRITIS [None]
  - PANCREATITIS [None]
  - ARTHRALGIA [None]
  - CONDITION AGGRAVATED [None]
  - NAUSEA [None]
  - ABDOMINAL PAIN UPPER [None]
